FAERS Safety Report 18080260 (Version 2)
Quarter: 2023Q2

REPORT INFORMATION
  Report Type: Report from Study
  Country: GB (occurrence: GB)
  Receive Date: 20200728
  Receipt Date: 20230628
  Transmission Date: 20230722
  Serious: Yes (Other)
  Sender: FDA-Public Use
  Company Number: GB-NOVARTISPH-NVSC2020GB209982

PATIENT
  Sex: Male

DRUGS (2)
  1. OMNITROPE [Suspect]
     Active Substance: SOMATROPIN
     Indication: Growth hormone deficiency
     Dosage: 0.3 MG, QD
     Route: 058
  2. OMNITROPE [Suspect]
     Active Substance: SOMATROPIN
     Indication: Hypopituitarism

REACTIONS (12)
  - Coronavirus infection [Unknown]
  - Influenza like illness [Unknown]
  - Dyspnoea [Unknown]
  - Concomitant disease progression [Unknown]
  - Endocrine disorder [Unknown]
  - Nervous system disorder [Unknown]
  - Blood pressure increased [Unknown]
  - Electric shock sensation [Unknown]
  - Fatigue [Unknown]
  - Asthenia [Unknown]
  - Poor quality product administered [Unknown]
  - Product storage error [Unknown]
